FAERS Safety Report 19083654 (Version 2)
Quarter: 2021Q2

REPORT INFORMATION
  Report Type: Spontaneous
  Country: GB (occurrence: GB)
  Receive Date: 20210401
  Receipt Date: 20210414
  Transmission Date: 20210717
  Serious: Yes (Other)
  Sender: FDA-Public Use
  Company Number: GB-CIPLA LTD.-2021GB02339

PATIENT

DRUGS (5)
  1. ESOMEPRAZOLE. [Concomitant]
     Active Substance: ESOMEPRAZOLE MAGNESIUM
     Indication: PRODUCT USED FOR UNKNOWN INDICATION
     Dosage: 1 DOSAGE FORM, BID (TAKE ONE TWICE DAILY)
     Route: 065
     Dates: start: 20210128
  2. ESOMEPRAZOLE. [Suspect]
     Active Substance: ESOMEPRAZOLE MAGNESIUM
     Indication: PRODUCT USED FOR UNKNOWN INDICATION
     Dosage: UNK
     Route: 065
     Dates: start: 20210316
  3. CIMETIDINE [Concomitant]
     Active Substance: CIMETIDINE
     Indication: PRODUCT USED FOR UNKNOWN INDICATION
     Dosage: 10 MILLILITER, QD (TABLETS OUT OF STOCK)
     Route: 065
     Dates: start: 20200709, end: 20210224
  4. OMEPRAZOLE. [Concomitant]
     Active Substance: OMEPRAZOLE
     Indication: HYPERCHLORHYDRIA
     Dosage: 2 DOSAGE FORM, QD (TAKE TWO DAILY TO REDUCE STOMACH ACID)
     Route: 065
     Dates: start: 20210316
  5. PANTOPRAZOLE [Concomitant]
     Active Substance: PANTOPRAZOLE
     Indication: PRODUCT USED FOR UNKNOWN INDICATION
     Dosage: 1 DOSAGE FORM, QD (ONE A DAY HALF AN HOUR BEFORE BREAKFAST)
     Route: 065
     Dates: start: 20190930, end: 20210128

REACTIONS (1)
  - Rash [Unknown]

NARRATIVE: CASE EVENT DATE: 20210316
